FAERS Safety Report 16384168 (Version 1)
Quarter: 2019Q2

REPORT INFORMATION
  Report Type: Spontaneous
  Country: AU (occurrence: AU)
  Receive Date: 20190603
  Receipt Date: 20190603
  Transmission Date: 20190711
  Serious: Yes (Other)
  Sender: FDA-Public Use
  Company Number: AU-PFIZER INC-2019219939

PATIENT
  Age: 58 Year
  Sex: Female

DRUGS (1)
  1. EFFEXOR XR [Suspect]
     Active Substance: VENLAFAXINE HYDROCHLORIDE
     Dosage: UNK

REACTIONS (7)
  - Suicidal ideation [Unknown]
  - Depression [Unknown]
  - Gambling disorder [Unknown]
  - Emotional disorder [Unknown]
  - Feeling guilty [Unknown]
  - Insomnia [Unknown]
  - Feeling abnormal [Unknown]
